FAERS Safety Report 7403523-6 (Version None)
Quarter: 2011Q2

REPORT INFORMATION
  Report Type: 
  Country: None (occurrence: None)
  Receive Date: 20110408
  Receipt Date: 20110331
  Transmission Date: 20111010
  Serious: Yes (Hospitalization, Other)
  Sender: FDA-Public Use
  Company Number: US-MERCK-1010USA00121

PATIENT
  Age: 52 Year
  Sex: Female
  Weight: 52 kg

DRUGS (9)
  1. FOSAMAX [Suspect]
     Route: 048
     Dates: start: 19990601, end: 20011201
  2. FOSAMAX [Suspect]
     Indication: OSTEOPOROSIS
     Route: 048
     Dates: start: 20020401, end: 20081003
  3. FOSAMAX [Suspect]
     Indication: OSTEOPENIA
     Route: 048
     Dates: start: 20020401, end: 20081003
  4. FOSAMAX PLUS D [Suspect]
     Indication: OSTEOPOROSIS
     Route: 048
  5. FOSAMAX [Suspect]
     Route: 048
     Dates: start: 19990601, end: 20011201
  6. FOSAMAX PLUS D [Suspect]
     Indication: OSTEOPENIA
     Route: 048
  7. ALENDRONATE SODIUM [Suspect]
     Indication: OSTEOPOROSIS
     Route: 048
     Dates: start: 20081004, end: 20100101
  8. ALENDRONATE SODIUM [Suspect]
     Indication: OSTEOPENIA
     Route: 048
     Dates: start: 20081004, end: 20100101
  9. VITAPLEX [Concomitant]
     Route: 048
     Dates: start: 19960101, end: 20061001

REACTIONS (24)
  - SINUS DISORDER [None]
  - URTICARIA [None]
  - SINUSITIS [None]
  - FALL [None]
  - ELECTROCARDIOGRAM T WAVE AMPLITUDE DECREASED [None]
  - DRUG HYPERSENSITIVITY [None]
  - ANXIETY DISORDER [None]
  - DENTAL CARIES [None]
  - OESOPHAGITIS [None]
  - EROSIVE OESOPHAGITIS [None]
  - HIATUS HERNIA [None]
  - FEMUR FRACTURE [None]
  - GASTRIC POLYPS [None]
  - FUNGAL INFECTION [None]
  - TENDONITIS [None]
  - BONE DENSITY DECREASED [None]
  - UPPER RESPIRATORY TRACT INFECTION [None]
  - DEPRESSION [None]
  - MUSCLE ENZYME INCREASED [None]
  - HYPERTENSION [None]
  - UTERINE DISORDER [None]
  - URINARY TRACT INFECTION [None]
  - HAEMORRHOIDS [None]
  - DIVERTICULUM INTESTINAL HAEMORRHAGIC [None]
